FAERS Safety Report 5631240-1 (Version None)
Quarter: 2008Q1

REPORT INFORMATION
  Report Type: 
  Country: None (occurrence: None)
  Receive Date: 20080131
  Receipt Date: 20071210
  Transmission Date: 20080703
  Serious: No
  Sender: FDA-Public Use
  Company Number: 163-21880-07101550

PATIENT
  Age: 60 Year
  Sex: Female
  Weight: 65.7716 kg

DRUGS (3)
  1. REVLIMID [Suspect]
     Indication: MYELODYSPLASTIC SYNDROME
     Dosage: 10 MG, DAILY FOR 28 DAYS, ORAL
     Route: 048
     Dates: start: 20070620, end: 20070801
  2. PENTASA [Concomitant]
  3. PROTONIX [Concomitant]

REACTIONS (7)
  - ANAEMIA [None]
  - DIARRHOEA [None]
  - FATIGUE [None]
  - LEUKOPENIA [None]
  - LYMPHADENOPATHY [None]
  - PRURITUS [None]
  - RASH [None]
